FAERS Safety Report 11805236 (Version 4)
Quarter: 2020Q2

REPORT INFORMATION
  Report Type: Spontaneous
  Country: DE (occurrence: DE)
  Receive Date: 20151206
  Receipt Date: 20200501
  Transmission Date: 20200713
  Serious: Yes (Congenital Anomaly, Other)
  Sender: FDA-Public Use
  Company Number: DE-MYLANLABS-2015M1042181

PATIENT
  Age: 8 Month
  Sex: Male
  Weight: 3.14 kg

DRUGS (8)
  1. FOLSAEURE [Concomitant]
     Active Substance: FOLIC ACID
     Indication: PROPHYLAXIS OF NEURAL TUBE DEFECT
     Dosage: UNK
     Route: 064
  2. SERTRALINE [Suspect]
     Active Substance: SERTRALINE HYDROCHLORIDE
     Indication: DEPRESSION
     Dosage: 800 MILLIGRAM (800 [MG/INSGESAMT)
     Route: 064
     Dates: start: 20140703, end: 20140703
  3. SERTRALINE [Suspect]
     Active Substance: SERTRALINE HYDROCHLORIDE
     Dosage: 150 [MG/D ]
     Route: 064
     Dates: start: 20140601, end: 20140718
  4. PROMETHAZINE [Suspect]
     Active Substance: PROMETHAZINE HYDROCHLORIDE
     Dosage: 100 MG, 2X/DAY (BID)
     Dates: start: 20140615, end: 20140718
  5. DIAZEPAM. [Concomitant]
     Active Substance: DIAZEPAM
     Indication: RESTLESSNESS
     Dosage: 5 [MG/D ]/ ON DEMAND
     Route: 064
  6. SERTRALINE [Suspect]
     Active Substance: SERTRALINE HYDROCHLORIDE
     Dosage: 150 MG, ONCE DAILY (QD)
     Route: 064
     Dates: start: 20140615, end: 201407
  7. SERTRALINE [Suspect]
     Active Substance: SERTRALINE HYDROCHLORIDE
     Dosage: 150 MG, ONCE DAILY (QD)
     Route: 064
     Dates: start: 201407, end: 20140718
  8. PROMETHAZINE [Suspect]
     Active Substance: PROMETHAZINE HYDROCHLORIDE
     Indication: RESTLESSNESS
     Dosage: 200 MILLIGRAM, QD (200 [MG/D (BIS 100) ])
     Route: 064
     Dates: start: 20140601, end: 20140718

REACTIONS (3)
  - Aortic valve stenosis [Recovered/Resolved with Sequelae]
  - Atrial septal defect [Not Recovered/Not Resolved]
  - Foetal exposure during pregnancy [Recovered/Resolved]

NARRATIVE: CASE EVENT DATE: 20140615
